FAERS Safety Report 7438937-1 (Version None)
Quarter: 2011Q2

REPORT INFORMATION
  Report Type: 
  Country: None (occurrence: None)
  Receive Date: 20110426
  Receipt Date: 20110408
  Transmission Date: 20111010
  Serious: No
  Sender: FDA-Public Use
  Company Number: US-BAYER-2011-030987

PATIENT
  Age: 49 Year
  Sex: Male

DRUGS (2)
  1. MAGNEVIST [Suspect]
     Dosage: 5 ML, ONCE
     Route: 042
     Dates: start: 20110407, end: 20110407
  2. MAGNEVIST [Suspect]
     Indication: ANGIOGRAM
     Dosage: 20 ML, ONCE
     Route: 042
     Dates: start: 20110407, end: 20110407

REACTIONS (1)
  - URTICARIA [None]
